FAERS Safety Report 19783327 (Version 2)
Quarter: 2021Q4

REPORT INFORMATION
  Report Type: Report from Study
  Country: CA (occurrence: CA)
  Receive Date: 20210903
  Receipt Date: 20211021
  Transmission Date: 20220303
  Serious: Yes (Other)
  Sender: FDA-Public Use
  Company Number: NVSC2021CA196308

PATIENT
  Age: 74 Year
  Sex: Male
  Weight: 90.9 kg

DRUGS (19)
  1. COSENTYX [Suspect]
     Active Substance: SECUKINUMAB
     Indication: Psoriasis
     Dosage: UNK
     Route: 065
  2. ACITRETIN [Suspect]
     Active Substance: ACITRETIN
     Indication: Psoriasis
     Dosage: 25 MG, QD
     Route: 065
     Dates: start: 20180403, end: 20190504
  3. ACITRETIN [Suspect]
     Active Substance: ACITRETIN
     Dosage: 30 MG, QD
     Route: 065
     Dates: start: 20191104
  4. ACITRETIN [Suspect]
     Active Substance: ACITRETIN
     Dosage: 30 MG, QD
     Route: 065
     Dates: start: 20200610
  5. ACITRETIN [Suspect]
     Active Substance: ACITRETIN
     Dosage: UNK
     Route: 048
  6. BETAMETHASONE\CALCIPOTRIENE [Concomitant]
     Active Substance: BETAMETHASONE\CALCIPOTRIENE
     Indication: Psoriasis
     Dosage: 1 APP, QD
     Route: 061
     Dates: start: 201907
  7. BETADERM [Concomitant]
     Active Substance: BETAMETHASONE VALERATE
     Indication: Psoriasis
     Dosage: 1 APP, QD
     Route: 061
     Dates: start: 201907
  8. BETADERM [Concomitant]
     Active Substance: BETAMETHASONE VALERATE
     Dosage: UNK
     Route: 065
     Dates: start: 202104
  9. ATENOLOL [Concomitant]
     Active Substance: ATENOLOL
     Indication: Hypertension
     Dosage: 50 MG, QD
     Route: 065
     Dates: start: 1998, end: 20180705
  10. ELIQUIS [Concomitant]
     Active Substance: APIXABAN
     Indication: Atrial fibrillation
     Dosage: 5 MG, QD
     Route: 065
     Dates: start: 201612
  11. INDAPAMIDE\PERINDOPRIL [Concomitant]
     Active Substance: INDAPAMIDE\PERINDOPRIL
     Indication: Hypertension
     Dosage: 1 DF, QD
     Route: 065
     Dates: start: 1998
  12. METFORMIN FC [Concomitant]
     Indication: Type 2 diabetes mellitus
     Dosage: 500 MG, BID
     Route: 065
  13. ALLOPURINOL [Concomitant]
     Active Substance: ALLOPURINOL
     Indication: Crystal urine
     Dosage: 200 MG, PRN
     Route: 065
     Dates: start: 1993
  14. NITROFURANTOIN [Concomitant]
     Active Substance: NITROFURANTOIN
     Indication: Cystitis
     Dosage: 100 MG, BID
     Route: 065
     Dates: start: 20191027, end: 20191103
  15. TAMSULOSIN HYDROCHLORIDE [Concomitant]
     Active Substance: TAMSULOSIN HYDROCHLORIDE
     Indication: Prostatitis
     Dosage: 0.4 MG, QD
     Route: 065
     Dates: start: 20190815, end: 20190915
  16. TETRACYCLINE HYDROCHLORIDE [Concomitant]
     Active Substance: TETRACYCLINE HYDROCHLORIDE
     Indication: Bronchitis
     Dosage: 500 MG, BID
     Route: 065
     Dates: start: 20190815, end: 20190829
  17. ALBUTEROL [Concomitant]
     Active Substance: ALBUTEROL
     Indication: Bronchitis
     Dosage: 100MCG, PRN (PUFFER)
     Route: 065
     Dates: start: 20190815, end: 201909
  18. FLUTICASONE [Concomitant]
     Active Substance: FLUTICASONE
     Indication: Bronchitis
     Dosage: 125MCG, BID (PUFFER)
     Route: 065
     Dates: start: 20190815, end: 201909
  19. TIOTROPIUM [Concomitant]
     Active Substance: TIOTROPIUM
     Indication: Bronchitis
     Dosage: 2.5MCG, QD (PUFFER)
     Route: 065
     Dates: start: 20190815, end: 201909

REACTIONS (2)
  - Bladder cancer [Unknown]
  - Prostate cancer [Recovered/Resolved]

NARRATIVE: CASE EVENT DATE: 20210401
